FAERS Safety Report 5780401-X (Version None)
Quarter: 2008Q2

REPORT INFORMATION
  Report Type: 
  Country: None (occurrence: None)
  Receive Date: 20080620
  Receipt Date: 20080616
  Transmission Date: 20081010
  Serious: Yes (Other)
  Sender: FDA-Public Use
  Company Number: NL-BRISTOL-MYERS SQUIBB COMPANY-14234108

PATIENT
  Age: 73 Year
  Sex: Male

DRUGS (1)
  1. MITOMYCIN [Suspect]

REACTIONS (3)
  - LARGE INTESTINE PERFORATION [None]
  - PERITONEAL EFFUSION [None]
  - PERITONITIS [None]
